FAERS Safety Report 24849905 (Version 3)
Quarter: 2025Q3

REPORT INFORMATION
  Report Type: Spontaneous
  Country: US (occurrence: US)
  Receive Date: 20250116
  Receipt Date: 20250925
  Transmission Date: 20251021
  Serious: Yes (Other)
  Sender: TAKEDA
  Company Number: US-TAKEDA-2025TUS003490

PATIENT
  Age: 25 Year
  Sex: Female

DRUGS (8)
  1. CUVITRU [Suspect]
     Active Substance: HUMAN IMMUNOGLOBULIN G
     Indication: Immunodeficiency common variable
  2. DUPIXENT [Suspect]
     Active Substance: DUPILUMAB
     Indication: Chronic rhinosinusitis with nasal polyps
     Dosage: 300 MILLIGRAM, Q2WEEKS
     Dates: start: 20241003
  3. RHINOCORT [Concomitant]
     Active Substance: BUDESONIDE
  4. AIRSUPRA [Concomitant]
     Active Substance: ALBUTEROL SULFATE\BUDESONIDE
  5. GAMUNEX-C [Concomitant]
     Active Substance: HUMAN IMMUNOGLOBULIN G
  6. LIDOCAINE [Concomitant]
     Active Substance: LIDOCAINE
  7. PRILOCAINE [Concomitant]
     Active Substance: PRILOCAINE
  8. DIPHENHYDRAMINE [Concomitant]
     Active Substance: DIPHENHYDRAMINE

REACTIONS (35)
  - Kidney infection [Unknown]
  - Pseudomonas infection [Unknown]
  - Swelling [Unknown]
  - Staphylococcal infection [Unknown]
  - Streptococcal infection [Unknown]
  - Fungal infection [Unknown]
  - Fatigue [Unknown]
  - Headache [Unknown]
  - Pain [Recovered/Resolved]
  - Nausea [Unknown]
  - Sinusitis bacterial [Unknown]
  - Peripheral swelling [Unknown]
  - Urinary tract infection [Not Recovered/Not Resolved]
  - Pollakiuria [Unknown]
  - Joint swelling [Unknown]
  - Infusion site irritation [Unknown]
  - Migraine with aura [Unknown]
  - Illness [Unknown]
  - Infection [Unknown]
  - Infusion site rash [Recovered/Resolved]
  - Nasal congestion [Unknown]
  - Decreased appetite [Unknown]
  - Abdominal pain upper [Unknown]
  - Infusion site pruritus [Unknown]
  - Infusion site pain [Unknown]
  - Pruritus [Unknown]
  - Erythema [Recovered/Resolved]
  - Injection site swelling [Unknown]
  - Injection site erythema [Unknown]
  - Nasal polyps [Recovering/Resolving]
  - Rebound effect [Recovering/Resolving]
  - Hypersensitivity [Unknown]
  - Injection site pruritus [Unknown]
  - Product dose omission in error [Unknown]
  - Rhinitis [Unknown]

NARRATIVE: CASE EVENT DATE: 20241001
